FAERS Safety Report 11619661 (Version 2)
Quarter: 2016Q2

REPORT INFORMATION
  Report Type: Spontaneous
  Country: IT (occurrence: IT)
  Receive Date: 20151012
  Receipt Date: 20160531
  Transmission Date: 20160815
  Serious: Yes (Hospitalization, Other)
  Sender: FDA-Public Use
  Company Number: IT-JNJFOC-20151005403

PATIENT
  Age: 47 Year
  Sex: Male

DRUGS (1)
  1. RISPERDAL [Suspect]
     Active Substance: RISPERIDONE
     Indication: PSYCHOTIC DISORDER
     Route: 030
     Dates: start: 20150730, end: 20150813

REACTIONS (5)
  - Blood creatine phosphokinase increased [Recovering/Resolving]
  - Extrapyramidal disorder [Recovering/Resolving]
  - Petechiae [Recovering/Resolving]
  - Hyperpyrexia [Recovering/Resolving]
  - Neuroleptic malignant syndrome [Recovering/Resolving]

NARRATIVE: CASE EVENT DATE: 20150818
